FAERS Safety Report 26083148 (Version 1)
Quarter: 2025Q4

REPORT INFORMATION
  Report Type: Spontaneous
  Country: CA (occurrence: CA)
  Receive Date: 20251124
  Receipt Date: 20251124
  Transmission Date: 20260118
  Serious: Yes (Hospitalization)
  Sender: PFIZER
  Company Number: CA-PFIZER INC-202500230127

PATIENT
  Age: 42 Year
  Sex: Male

DRUGS (7)
  1. TRASTUZUMAB [Suspect]
     Active Substance: TRASTUZUMAB
     Indication: Colorectal cancer metastatic
     Dosage: 530 MG, EVERY 3 WEEKS
     Route: 041
  2. OXALIPLATIN [Suspect]
     Active Substance: OXALIPLATIN
     Indication: Colorectal cancer metastatic
     Dosage: 177 MG, EVERY 2 WEEKS
     Route: 041
  3. TUCATINIB [Suspect]
     Active Substance: TUCATINIB
     Indication: Colorectal cancer metastatic
     Dosage: 300 MG, 2X/DAY
     Route: 048
  4. LEUCOVORIN [Suspect]
     Active Substance: LEUCOVORIN\LEUCOVORIN CALCIUM
     Indication: Colorectal cancer metastatic
     Dosage: 832 MG, EVERY 2 WEEKS
     Route: 041
  5. APIXABAN [Suspect]
     Active Substance: APIXABAN
     Indication: Deep vein thrombosis
     Dosage: 5 MG, 2X/DAY
     Route: 048
  6. FLUOROURACIL [Suspect]
     Active Substance: FLUOROURACIL
     Indication: Colorectal cancer metastatic
     Dosage: 832 MG, EVERY 2 WEEKS
     Route: 040
  7. FLUOROURACIL [Suspect]
     Active Substance: FLUOROURACIL
     Dosage: 4992 MG, EVERY 2 WEEKS
     Route: 040

REACTIONS (2)
  - Stoma site haemorrhage [Recovered/Resolved]
  - Off label use [Unknown]
